FAERS Safety Report 9620847 (Version 3)
Quarter: 2013Q4

REPORT INFORMATION
  Report Type: Spontaneous
  Country: JP (occurrence: JP)
  Receive Date: 20131015
  Receipt Date: 20131105
  Transmission Date: 20140711
  Serious: Yes (Other)
  Sender: FDA-Public Use
  Company Number: JP-ELI_LILLY_AND_COMPANY-JP201310001485

PATIENT
  Age: 63 Year
  Sex: Female
  Weight: 80 kg

DRUGS (18)
  1. CYMBALTA [Suspect]
     Indication: BIPOLAR DISORDER
     Dosage: 20 MG, UNK
     Route: 048
     Dates: start: 20130913, end: 20130919
  2. CYMBALTA [Suspect]
     Dosage: 40 MG, QD
     Route: 048
     Dates: start: 20130920, end: 20130923
  3. ZYPREXA [Suspect]
     Indication: BIPOLAR DISORDER
     Dosage: 2.5 MG, UNK
     Route: 048
     Dates: start: 20130920, end: 20130923
  4. ZYPREXA [Suspect]
     Dosage: 7.5 MG, QD
     Route: 048
     Dates: start: 20130924, end: 20130927
  5. ZYPREXA [Suspect]
     Dosage: 10 MG, QD
     Route: 048
     Dates: start: 20130928, end: 20131004
  6. ZYPREXA [Suspect]
     Dosage: 20 MG, UNK
     Route: 048
     Dates: start: 20131005, end: 20131011
  7. ZYPREXA [Suspect]
     Dosage: 10 MG, UNK
     Route: 048
     Dates: start: 20131012
  8. LONASEN [Concomitant]
     Indication: PRODUCT USED FOR UNKNOWN INDICATION
     Dosage: 8 MG, UNK
     Route: 048
     Dates: start: 20130924, end: 20130927
  9. LONASEN [Concomitant]
     Dosage: 16 MG, QD
     Route: 048
     Dates: start: 20130928
  10. LIMAS [Concomitant]
     Indication: BIPOLAR DISORDER
     Dosage: 200 MG, UNK
     Route: 048
     Dates: start: 20050415
  11. TOLEDOMIN [Concomitant]
     Indication: BIPOLAR DISORDER
     Dosage: 25 MG, UNK
     Route: 048
     Dates: start: 20050415, end: 20130920
  12. ABILIFY [Concomitant]
     Indication: BIPOLAR DISORDER
     Dosage: 6 MG, UNK
     Route: 048
     Dates: start: 20130906
  13. ABILIT [Concomitant]
     Indication: BIPOLAR DISORDER
     Dosage: 50 MG, UNK
     Route: 048
     Dates: start: 20050415, end: 20130920
  14. LUDIOMIL TABLET [Concomitant]
     Indication: BIPOLAR DISORDER
     Dosage: 25 MG, UNK
     Route: 048
     Dates: start: 20050415, end: 20131004
  15. LUDIOMIL TABLET [Concomitant]
     Dosage: 30 MG, UNK
     Route: 048
     Dates: start: 20131005, end: 20131012
  16. NEULEPTIL [Concomitant]
     Indication: PRODUCT USED FOR UNKNOWN INDICATION
     Dosage: 10 MG, UNK
     Route: 065
     Dates: start: 20130924
  17. SILECE [Concomitant]
     Indication: PRODUCT USED FOR UNKNOWN INDICATION
     Dosage: 2 MG, UNK
     Route: 065
     Dates: start: 20130924
  18. REFLEX [Concomitant]
     Indication: PRODUCT USED FOR UNKNOWN INDICATION
     Dosage: 15 MG, UNK
     Dates: start: 20131012

REACTIONS (5)
  - Paranoia [Recovered/Resolved]
  - Hallucination [Recovered/Resolved]
  - Off label use [Unknown]
  - Restlessness [Recovered/Resolved]
  - Insomnia [Recovered/Resolved]
